FAERS Safety Report 10652473 (Version 3)
Quarter: 2015Q1

REPORT INFORMATION
  Report Type: Report from Study
  Country: JP (occurrence: JP)
  Receive Date: 20141215
  Receipt Date: 20150306
  Transmission Date: 20150720
  Serious: Yes (Hospitalization, Disabling)
  Sender: FDA-Public Use
  Company Number: JP-PFIZER INC-2014338809

PATIENT
  Age: 79 Year
  Sex: Female
  Weight: 34.5 kg

DRUGS (8)
  1. NOVAMIN [Concomitant]
     Active Substance: PROCHLORPERAZINE MALEATE
     Dosage: 5 MG, 2X/DAY
     Route: 048
     Dates: start: 20140812, end: 20140818
  2. MAGMITT [Concomitant]
     Active Substance: MAGNESIUM OXIDE
     Dosage: 330 MG, 3X/DAY
     Route: 048
     Dates: start: 20140808, end: 20140920
  3. MEROPENEM. [Concomitant]
     Active Substance: MEROPENEM
     Dosage: 0.5 G, 2X/DAY
     Dates: start: 20140818, end: 20140825
  4. PURSENNID [Concomitant]
     Active Substance: SENNOSIDES A AND B
     Dosage: 24 MG, 1X/DAY
     Route: 048
     Dates: start: 20140808, end: 20140920
  5. XALKORI [Suspect]
     Active Substance: CRIZOTINIB
     Indication: NON-SMALL CELL LUNG CANCER
     Dosage: 250 MG, 2X/DAY
     Route: 048
     Dates: start: 20140807, end: 20140819
  6. NAUZELIN [Concomitant]
     Active Substance: DOMPERIDONE
     Dosage: 10 MG, 3X/DAY
     Route: 048
     Dates: start: 20140807, end: 20140920
  7. KYTRIL [Concomitant]
     Active Substance: GRANISETRON HYDROCHLORIDE
     Dosage: 2 MG, 1X/DAY
     Route: 048
     Dates: start: 20140815, end: 20140820
  8. NASEA OD [Concomitant]
     Dosage: 0.1 MG, 1X/DAY
     Route: 048
     Dates: start: 20140813, end: 20140814

REACTIONS (3)
  - Liver abscess [Recovered/Resolved]
  - Intestinal obstruction [Recovered/Resolved with Sequelae]
  - Renal abscess [Recovered/Resolved]

NARRATIVE: CASE EVENT DATE: 20140819
